FAERS Safety Report 19797517 (Version 1)
Quarter: 2021Q3

REPORT INFORMATION
  Report Type: Spontaneous
  Country: US (occurrence: US)
  Receive Date: 20210905
  Receipt Date: 20210905
  Transmission Date: 20211014
  Serious: Yes (Other)
  Sender: FDA-Public Use
  Company Number: None

PATIENT
  Age: 30 Year
  Sex: Female
  Weight: 90.6 kg

DRUGS (3)
  1. IVERMECTIN. [Suspect]
     Active Substance: IVERMECTIN
     Indication: COVID-19
     Route: 048
     Dates: start: 20210831
  2. NAC 600 MG [Concomitant]
     Dates: start: 20210831
  3. DEXAMETHASONE 6 MG [Concomitant]
     Dates: start: 20210831

REACTIONS (2)
  - Abdominal pain [None]
  - Gastrointestinal disorder [None]

NARRATIVE: CASE EVENT DATE: 20210905
